FAERS Safety Report 8965947 (Version 1)
Quarter: 2012Q4

REPORT INFORMATION
  Report Type: 
  Country: US (occurrence: US)
  Receive Date: 20121217
  Receipt Date: 20121217
  Transmission Date: 20130627
  Serious: No
  Sender: FDA-Public Use
  Company Number: US-ABBOTT-12P-163-0915009-00

PATIENT
  Sex: Female
  Weight: 122.58 kg

DRUGS (5)
  1. TRILIPIX [Suspect]
     Indication: PRODUCT USED FOR UNKNOWN INDICATION
  2. LOSARTIN [Concomitant]
     Indication: HYPERTENSION
  3. METOPROLOL [Concomitant]
     Indication: HYPERTENSION
  4. LEVOTHYROXINE [Concomitant]
     Indication: THYROID DISORDER
  5. CYTALOPRAM [Concomitant]
     Indication: ANXIETY

REACTIONS (2)
  - Increased appetite [Unknown]
  - Diarrhoea [Unknown]
